FAERS Safety Report 10249012 (Version 1)
Quarter: 2014Q2

REPORT INFORMATION
  Report Type: Report from Study
  Country: HU (occurrence: HU)
  Receive Date: 20140620
  Receipt Date: 20140620
  Transmission Date: 20141212
  Serious: Yes (Hospitalization)
  Sender: FDA-Public Use
  Company Number: HU-B.I. PHARMACEUTICALS,INC./RIDGEFIELD-2014-BI-26515BI

PATIENT
  Age: 68 Year
  Sex: Female

DRUGS (10)
  1. GLIMEPIRIDE [Suspect]
     Indication: DIABETES MELLITUS
     Route: 048
     Dates: start: 20140527
  2. DALNESSA [Concomitant]
     Dosage: STRENGTH AND DAILY DOSE: 4/10 MG
     Route: 048
  3. ASPIRIN PROTECT [Concomitant]
     Dosage: 100 MG
     Route: 048
  4. TALLITON [Concomitant]
     Dosage: 625 MG
     Route: 048
  5. APO-FAMOTIDINE [Concomitant]
     Dosage: 140 MG
     Route: 048
  6. TEGRETOL CR [Concomitant]
     Dosage: 200 MG
     Route: 048
  7. KEPPRA [Concomitant]
     Dosage: 100 MG
     Route: 048
  8. TENSART [Concomitant]
     Dosage: 80 MG
     Route: 048
  9. DECHOLEST [Concomitant]
     Dosage: 40 MG
     Route: 048
  10. AMILOZID [Concomitant]
     Dosage: DOSE PER APPLICATION AND DAILY DOSE: 50/5 MG
     Route: 048

REACTIONS (2)
  - Epilepsy [Not Recovered/Not Resolved]
  - Atrioventricular block complete [Not Recovered/Not Resolved]
